FAERS Safety Report 25155974 (Version 1)
Quarter: 2025Q2

REPORT INFORMATION
  Report Type: Spontaneous
  Country: US (occurrence: US)
  Receive Date: 20250403
  Receipt Date: 20250403
  Transmission Date: 20250716
  Serious: Yes (Hospitalization)
  Sender: BAYER
  Company Number: US-BAYER-2025A041357

PATIENT
  Age: 69 Year
  Sex: Male

DRUGS (1)
  1. ADEMPAS [Suspect]
     Active Substance: RIOCIGUAT
     Indication: Pulmonary hypertension
     Dosage: 0.5 MG, TID
     Dates: start: 20250306

REACTIONS (3)
  - Septic shock [None]
  - Asthenia [None]
  - Hypotension [None]

NARRATIVE: CASE EVENT DATE: 20250301
